FAERS Safety Report 23682552 (Version 1)
Quarter: 2024Q1

REPORT INFORMATION
  Report Type: Spontaneous
  Country: CN (occurrence: CN)
  Receive Date: 20240328
  Receipt Date: 20240328
  Transmission Date: 20240410
  Serious: Yes (Other)
  Sender: FDA-Public Use
  Company Number: CN-PFIZER INC-PV202400040898

PATIENT
  Age: 45 Year
  Sex: Female
  Weight: 41 kg

DRUGS (4)
  1. EPIRUBICIN HYDROCHLORIDE [Suspect]
     Active Substance: EPIRUBICIN HYDROCHLORIDE
     Indication: Gastric cancer
     Dosage: 40 MG, 1X/DAY
     Dates: start: 20240307, end: 20240307
  2. OXALIPLATIN [Suspect]
     Active Substance: OXALIPLATIN
     Indication: Gastric cancer
     Dosage: 50 MG, 1X/DAY
     Dates: start: 20240307, end: 20240307
  3. FLUOROURACIL [Suspect]
     Active Substance: FLUOROURACIL
     Indication: Gastric cancer
     Dosage: 1 G, 1X/DAY
     Dates: start: 20240307, end: 20240307
  4. ETHIODIZED OIL [Concomitant]
     Active Substance: ETHIODIZED OIL
     Indication: Vehicle solution use
     Dosage: 2 ML, 1X/DAY
     Dates: start: 20240307, end: 20240307

REACTIONS (1)
  - Transaminases abnormal [Recovering/Resolving]

NARRATIVE: CASE EVENT DATE: 20240309
